FAERS Safety Report 7295260-6 (Version None)
Quarter: 2011Q1

REPORT INFORMATION
  Report Type: 
  Country: None (occurrence: None)
  Receive Date: 20110216
  Receipt Date: 20110209
  Transmission Date: 20110831
  Serious: Yes (Disabling)
  Sender: FDA-Public Use
  Company Number: US-JNJFOC-20110203662

PATIENT
  Sex: Female
  Weight: 46.5 kg

DRUGS (22)
  1. TYLENOL [Concomitant]
     Indication: PREMEDICATION
     Route: 048
  2. BENADRYL [Concomitant]
     Indication: PREMEDICATION
     Route: 048
  3. REMICADE [Suspect]
     Route: 042
  4. TYLENOL [Concomitant]
     Route: 048
  5. ANTIBIOTICS [Concomitant]
     Indication: INFLAMMATORY BOWEL DISEASE
  6. REMICADE [Suspect]
     Route: 042
  7. TYLENOL [Concomitant]
     Route: 048
  8. BENADRYL [Concomitant]
     Route: 048
  9. REMICADE [Suspect]
     Route: 042
  10. PREDNISONE TAB [Concomitant]
  11. REMICADE [Suspect]
     Route: 042
  12. BUDESONIDE [Concomitant]
  13. BENADRYL [Concomitant]
     Route: 048
  14. REMICADE [Suspect]
     Indication: INFLAMMATORY BOWEL DISEASE
     Route: 042
  15. TYLENOL [Concomitant]
     Route: 048
  16. MESALAMINE [Concomitant]
     Route: 048
  17. BENADRYL [Concomitant]
     Route: 048
  18. BENADRYL [Concomitant]
     Route: 048
  19. REMICADE [Suspect]
     Route: 042
  20. TYLENOL [Concomitant]
     Route: 048
  21. TYLENOL [Concomitant]
     Route: 048
  22. BENADRYL [Concomitant]
     Route: 048

REACTIONS (1)
  - LUPUS-LIKE SYNDROME [None]
